FAERS Safety Report 19087366 (Version 1)
Quarter: 2021Q2

REPORT INFORMATION
  Report Type: Spontaneous
  Country: GR (occurrence: GR)
  Receive Date: 20210402
  Receipt Date: 20210402
  Transmission Date: 20210717
  Serious: Yes (Hospitalization, Other)
  Sender: FDA-Public Use
  Company Number: GR-GLAXOSMITHKLINE-GRCH2021017131

PATIENT
  Age: 60 Year
  Sex: Female

DRUGS (1)
  1. VOLTAREN [Suspect]
     Active Substance: DICLOFENAC SODIUM
     Indication: PRODUCT USED FOR UNKNOWN INDICATION
     Dosage: 50 MG SACHETS 7X3 IN MORNING (PRE?PRANDIAL)
     Route: 065
     Dates: start: 20201103

REACTIONS (5)
  - Dyspnoea [Unknown]
  - Anaphylactic shock [Unknown]
  - Product quality issue [Unknown]
  - Skin texture abnormal [Unknown]
  - Erythema [Unknown]
